FAERS Safety Report 6676167-1 (Version None)
Quarter: 2010Q2

REPORT INFORMATION
  Report Type: 
  Country: None (occurrence: None)
  Receive Date: 20100412
  Receipt Date: 20091218
  Transmission Date: 20101027
  Serious: Yes (Disabling)
  Sender: FDA-Public Use
  Company Number: FR-JNJFOC-20090901171

PATIENT
  Age: 34 Year
  Sex: Female

DRUGS (6)
  1. LEVOFLOXACIN [Suspect]
     Indication: LUNG DISORDER
     Route: 048
  2. LEVOFLOXACIN [Suspect]
     Route: 048
  3. LEVOFLOXACIN [Suspect]
     Route: 048
  4. PARACETAMOL [Concomitant]
     Indication: PYREXIA
     Route: 048
  5. POLERY ADULTE [Concomitant]
     Indication: COUGH
     Route: 048
  6. AUGMENTIN '125' [Concomitant]
     Indication: INFECTION
     Route: 065

REACTIONS (5)
  - ARTHRALGIA [None]
  - DISABILITY [None]
  - EPICONDYLITIS [None]
  - MUSCULAR WEAKNESS [None]
  - MYALGIA [None]
